FAERS Safety Report 8381556-3 (Version None)
Quarter: 2012Q2

REPORT INFORMATION
  Report Type: 
  Country: None (occurrence: None)
  Receive Date: 20120523
  Receipt Date: 20120509
  Transmission Date: 20120825
  Serious: Yes (Other)
  Sender: FDA-Public Use
  Company Number: CHPA2012US010820

PATIENT
  Sex: Male

DRUGS (3)
  1. EXCEDRIN (MIGRAINE) [Suspect]
     Dosage: 2 DF, PRN
     Route: 048
  2. WARFARIN SODIUM [Concomitant]
     Indication: CARDIAC DISORDER
     Dosage: UNK
  3. EXCEDRIN (MIGRAINE) [Suspect]
     Indication: MIGRAINE
     Dosage: 1 DF, PRN
     Route: 048

REACTIONS (2)
  - THYROID DISORDER [None]
  - UNDERDOSE [None]
